FAERS Safety Report 7407382-7 (Version None)
Quarter: 2011Q2

REPORT INFORMATION
  Report Type: 
  Country: None (occurrence: None)
  Receive Date: 20110411
  Receipt Date: 20110401
  Transmission Date: 20111010
  Serious: Yes (Hospitalization, Other)
  Sender: FDA-Public Use
  Company Number: US-MERCK-1009USA05574

PATIENT
  Age: 70 Year
  Sex: Female
  Weight: 44 kg

DRUGS (2)
  1. HORMONES (UNSPECIFIED) [Concomitant]
     Route: 065
     Dates: start: 19900101
  2. FOSAMAX [Suspect]
     Indication: OSTEOPOROSIS
     Route: 048
     Dates: start: 19950101, end: 20090101

REACTIONS (5)
  - ARTHROPATHY [None]
  - OSTEOPENIA [None]
  - LOW TURNOVER OSTEOPATHY [None]
  - BONE PAIN [None]
  - FEMUR FRACTURE [None]
